FAERS Safety Report 6324330-1 (Version None)
Quarter: 2009Q3

REPORT INFORMATION
  Report Type: 
  Country: None (occurrence: None)
  Receive Date: 20090824
  Receipt Date: 20090515
  Transmission Date: 20100115
  Serious: No
  Sender: FDA-Public Use
  Company Number: US-ABBOTT-09P-163-0573928-00

PATIENT
  Sex: Female

DRUGS (18)
  1. NIASPAN [Suspect]
     Indication: LOW DENSITY LIPOPROTEIN INCREASED
     Dates: start: 20090510, end: 20090512
  2. NIASPAN [Suspect]
     Indication: HIGH DENSITY LIPOPROTEIN DECREASED
  3. TRILIPIX [Suspect]
     Indication: DRUG USE FOR UNKNOWN INDICATION
     Dates: start: 20090511, end: 20090513
  4. HYDROCODONE [Concomitant]
     Indication: DRUG USE FOR UNKNOWN INDICATION
  5. AVANDIA [Concomitant]
     Indication: DRUG USE FOR UNKNOWN INDICATION
  6. FUROSEMIDE [Concomitant]
     Indication: DRUG USE FOR UNKNOWN INDICATION
  7. HYOSCYAMINE [Concomitant]
     Indication: DRUG USE FOR UNKNOWN INDICATION
  8. AMBIEN [Concomitant]
     Indication: DRUG USE FOR UNKNOWN INDICATION
  9. SOMA [Concomitant]
     Indication: DRUG USE FOR UNKNOWN INDICATION
  10. LORAZEPAM [Concomitant]
     Indication: DRUG USE FOR UNKNOWN INDICATION
  11. NORVASC [Concomitant]
     Indication: DRUG USE FOR UNKNOWN INDICATION
  12. MOBIC [Concomitant]
     Indication: DRUG USE FOR UNKNOWN INDICATION
  13. ZOLOFT [Concomitant]
     Indication: DRUG USE FOR UNKNOWN INDICATION
  14. ALLEGRA [Concomitant]
     Indication: DRUG USE FOR UNKNOWN INDICATION
  15. SIMVASTATIN [Concomitant]
     Indication: DRUG USE FOR UNKNOWN INDICATION
  16. SYNTHROID [Concomitant]
     Indication: DRUG USE FOR UNKNOWN INDICATION
  17. ATACAND [Concomitant]
     Indication: DRUG USE FOR UNKNOWN INDICATION
  18. ACTOS [Concomitant]
     Indication: DRUG USE FOR UNKNOWN INDICATION
     Dates: start: 20090511, end: 20090513

REACTIONS (6)
  - EYE PAIN [None]
  - FLUSHING [None]
  - HEADACHE [None]
  - NAUSEA [None]
  - TREMOR [None]
  - VOMITING [None]
